FAERS Safety Report 9190344 (Version 2)
Quarter: 2013Q3

REPORT INFORMATION
  Report Type: Spontaneous
  Country: PT (occurrence: PT)
  Receive Date: 20130326
  Receipt Date: 20130718
  Transmission Date: 20140515
  Serious: Yes (Death, Hospitalization, Other)
  Sender: FDA-Public Use
  Company Number: PT-ASTELLAS-2013US003139

PATIENT
  Age: 65 Year
  Sex: Male

DRUGS (2)
  1. TARCEVA [Suspect]
     Indication: NON-SMALL CELL LUNG CANCER
     Dosage: 150 MG, UID/QD
     Route: 048
     Dates: start: 20130121, end: 20130328
  2. TARCEVA [Suspect]
     Dosage: 150 MG, UID/QD VIA PEG
     Route: 050
     Dates: end: 20130328

REACTIONS (6)
  - Drug administration error [Unknown]
  - Drug administration error [Unknown]
  - Incorrect route of drug administration [Unknown]
  - Pneumonia [Fatal]
  - Lung neoplasm malignant [Unknown]
  - Malignant neoplasm progression [Unknown]
